FAERS Safety Report 20071388 (Version 2)
Quarter: 2022Q2

REPORT INFORMATION
  Report Type: Spontaneous
  Country: ES (occurrence: ES)
  Receive Date: 20211115
  Receipt Date: 20220504
  Transmission Date: 20220721
  Serious: Yes (Hospitalization)
  Sender: FDA-Public Use
  Company Number: ES-ZAMBON-202103054ESP

PATIENT
  Age: 59 Year
  Sex: Male

DRUGS (2)
  1. XADAGO [Suspect]
     Active Substance: SAFINAMIDE MESYLATE
     Indication: Parkinson^s disease
     Dosage: NOT PROVIDED
     Dates: end: 2021
  2. CARBIDOPA\LEVODOPA [Concomitant]
     Active Substance: CARBIDOPA\LEVODOPA
     Indication: Parkinson^s disease
     Dosage: 400 MG

REACTIONS (1)
  - Colitis ischaemic [Unknown]

NARRATIVE: CASE EVENT DATE: 20210801
